FAERS Safety Report 17042992 (Version 1)
Quarter: 2019Q4

REPORT INFORMATION
  Report Type: Spontaneous
  Country: US (occurrence: US)
  Receive Date: 20191118
  Receipt Date: 20191118
  Transmission Date: 20200122
  Serious: Yes (Hospitalization)
  Sender: FDA-Public Use
  Company Number: US-JNJFOC-20191113624

PATIENT
  Age: 27 Year
  Sex: Male

DRUGS (1)
  1. INVEGA TRINZA [Suspect]
     Active Substance: PALIPERIDONE PALMITATE
     Indication: BIPOLAR I DISORDER
     Route: 030
     Dates: start: 2019

REACTIONS (6)
  - Product use in unapproved indication [Unknown]
  - Off label use [Unknown]
  - Bipolar I disorder [Recovered/Resolved]
  - Needle issue [Unknown]
  - Underdose [Unknown]
  - Accidental exposure to product [Unknown]

NARRATIVE: CASE EVENT DATE: 2019
